FAERS Safety Report 4705942-5 (Version None)
Quarter: 2005Q2

REPORT INFORMATION
  Report Type: 
  Country: None (occurrence: None)
  Receive Date: 20050628
  Receipt Date: 20040521
  Transmission Date: 20051028
  Serious: Yes (Hospitalization)
  Sender: FDA-Public Use
  Company Number: VISP-PR-0405S-0198

PATIENT
  Age: 78 Year
  Sex: Female

DRUGS (1)
  1. VISIPAQUE [Suspect]
     Indication: ABDOMINAL PAIN
     Dosage: 100 ML, SINGLE DOSE, I.V.
     Route: 042
     Dates: start: 20040518, end: 20040518

REACTIONS (1)
  - HYPERSENSITIVITY [None]
